FAERS Safety Report 5067149-4 (Version None)
Quarter: 2006Q3

REPORT INFORMATION
  Report Type: 
  Country: None (occurrence: None)
  Receive Date: 20060726
  Receipt Date: 20060717
  Transmission Date: 20061208
  Serious: Yes (Hospitalization, Disabling)
  Sender: FDA-Public Use
  Company Number: 2006-07-1079

PATIENT
  Age: 41 Year
  Sex: Male
  Weight: 88.4514 kg

DRUGS (2)
  1. PEG-INTRON [Suspect]
     Indication: HEPATITIS C
     Dosage: SUBCUTANEOUS
     Route: 058
     Dates: start: 20050908
  2. RIBASPHERE [Suspect]
     Indication: HEPATITIS C
     Dosage: ORAL
     Route: 048
     Dates: start: 20050908

REACTIONS (11)
  - CEREBROVASCULAR ACCIDENT [None]
  - DEHYDRATION [None]
  - DEPRESSION [None]
  - DRY MOUTH [None]
  - FALL [None]
  - HAEMODIALYSIS [None]
  - HEAD INJURY [None]
  - INSOMNIA [None]
  - LACERATION [None]
  - LOSS OF CONSCIOUSNESS [None]
  - RENAL FAILURE [None]
